FAERS Safety Report 12992061 (Version 1)
Quarter: 2016Q4

REPORT INFORMATION
  Report Type: Spontaneous
  Country: DE (occurrence: DE)
  Receive Date: 20161201
  Receipt Date: 20161201
  Transmission Date: 20170207
  Serious: Yes (Hospitalization)
  Sender: FDA-Public Use
  Company Number: DE-009507513-1611DEU013996

PATIENT
  Age: 77 Year
  Sex: Female

DRUGS (17)
  1. NACOM 100 MG/25 MG TABLETTEN [Suspect]
     Active Substance: CARBIDOPA\LEVODOPA
     Dosage: 400/100 MG DAILY
     Route: 048
     Dates: start: 20160328, end: 20160403
  2. METFORMIN [Concomitant]
     Active Substance: METFORMIN HYDROCHLORIDE
     Dosage: 2 G, UNK
     Route: 048
  3. NACOM 100 MG/25 MG TABLETTEN [Suspect]
     Active Substance: CARBIDOPA\LEVODOPA
     Dosage: 600/150 MG DAILY
     Route: 048
     Dates: start: 20160404, end: 20160406
  4. AMITRIPTYLINE HYDROCHLORIDE. [Suspect]
     Active Substance: AMITRIPTYLINE HYDROCHLORIDE
     Dosage: 25 MG, QD
     Route: 048
     Dates: start: 20160425
  5. AMITRIPTYLINE HYDROCHLORIDE. [Suspect]
     Active Substance: AMITRIPTYLINE HYDROCHLORIDE
     Dosage: 75 MG, QD
     Route: 048
     Dates: start: 20160218, end: 20160222
  6. ESCITALOPRAM [Suspect]
     Active Substance: ESCITALOPRAM OXALATE
     Dosage: 10 MG, QD
     Route: 048
     Dates: start: 20160324, end: 20160330
  7. NACOM 100 MG/25 MG TABLETTEN [Suspect]
     Active Substance: CARBIDOPA\LEVODOPA
     Dosage: 300/75 MG DAILY
     Route: 048
     Dates: start: 20160407
  8. NACOM 100 MG/25 MG TABLETTEN [Suspect]
     Active Substance: CARBIDOPA\LEVODOPA
     Dosage: 150/37.5 MG DAILY
     Route: 048
     Dates: start: 20160408, end: 20160410
  9. ESCITALOPRAM [Suspect]
     Active Substance: ESCITALOPRAM OXALATE
     Dosage: 5 MG, 1 DAY
     Route: 048
     Dates: start: 20160322, end: 20160323
  10. LORAZEPAM. [Concomitant]
     Active Substance: LORAZEPAM
     Dosage: 1 MG, QD
     Route: 048
     Dates: end: 20160314
  11. LORAZEPAM. [Concomitant]
     Active Substance: LORAZEPAM
     Dosage: 1.5 MG, QD
     Route: 048
     Dates: start: 20160315
  12. NACOM 100 MG/25 MG TABLETTEN [Suspect]
     Active Substance: CARBIDOPA\LEVODOPA
     Dosage: 100/25 MG DAILY
     Route: 048
     Dates: start: 20160301, end: 20160307
  13. AMITRIPTYLINE HYDROCHLORIDE. [Suspect]
     Active Substance: AMITRIPTYLINE HYDROCHLORIDE
     Dosage: 25 MG, QD
     Route: 048
     Dates: start: 20160204, end: 20160209
  14. AMITRIPTYLINE HYDROCHLORIDE. [Suspect]
     Active Substance: AMITRIPTYLINE HYDROCHLORIDE
     Dosage: 50 MG, QD
     Route: 048
     Dates: start: 20160210, end: 20160217
  15. AMITRIPTYLINE HYDROCHLORIDE. [Suspect]
     Active Substance: AMITRIPTYLINE HYDROCHLORIDE
     Dosage: 50 MG, QD
     Route: 048
     Dates: start: 20160223, end: 20160424
  16. ESCITALOPRAM [Suspect]
     Active Substance: ESCITALOPRAM OXALATE
     Dosage: 15 MG, QD
     Route: 048
     Dates: start: 20160405
  17. ELIQUIS [Concomitant]
     Active Substance: APIXABAN
     Dosage: 5 MG, QD
     Route: 048
     Dates: start: 2014

REACTIONS (1)
  - Delirium [Recovered/Resolved]

NARRATIVE: CASE EVENT DATE: 20160406
